FAERS Safety Report 17027064 (Version 1)
Quarter: 2019Q4

REPORT INFORMATION
  Report Type: Spontaneous
  Country: US (occurrence: US)
  Receive Date: 20191009
  Receipt Date: 20191009
  Transmission Date: 20200122
  Serious: Yes (Hospitalization)
  Sender: FDA-Public Use
  Company Number: None

PATIENT
  Age: 75 Year
  Sex: Female
  Weight: 40.2 kg

DRUGS (2)
  1. DOXORUBICIN [Concomitant]
     Active Substance: DOXORUBICIN
     Dates: end: 20190918
  2. CYCLOPHOSPHAMIDE. [Suspect]
     Active Substance: CYCLOPHOSPHAMIDE
     Dates: end: 20190918

REACTIONS (6)
  - Febrile neutropenia [None]
  - Dysphagia [None]
  - Odynophagia [None]
  - Dehydration [None]
  - Oropharyngeal pain [None]
  - Pleural effusion [None]

NARRATIVE: CASE EVENT DATE: 20190925
